FAERS Safety Report 8076844-4 (Version None)
Quarter: 2012Q1

REPORT INFORMATION
  Report Type: 
  Country: None (occurrence: None)
  Receive Date: 20120127
  Receipt Date: 20120114
  Transmission Date: 20120608
  Serious: Yes (Disabling, Other)
  Sender: FDA-Public Use
  Company Number: PHHY2012IT005734

PATIENT
  Age: 69 Year
  Sex: Female

DRUGS (5)
  1. DIURETICS [Concomitant]
     Indication: HYPERTENSION
  2. FEMARA [Suspect]
     Indication: BREAST CANCER
     Dosage: 2.5 MG, UNK
  3. FEMARA [Suspect]
     Dosage: 2.5 MG, UNK
  4. ONCO-CARBIDE [Concomitant]
  5. ACE INHIBITOR NOS [Concomitant]
     Indication: HYPERTENSION

REACTIONS (9)
  - OEDEMA PERIPHERAL [None]
  - ARTHRALGIA [None]
  - TENDON DISORDER [None]
  - RED BLOOD CELL SEDIMENTATION RATE INCREASED [None]
  - ARTHRITIS [None]
  - PAIN IN EXTREMITY [None]
  - FATIGUE [None]
  - TENOSYNOVITIS STENOSANS [None]
  - PLATELET COUNT INCREASED [None]
